FAERS Safety Report 10792510 (Version 1)
Quarter: 2015Q1

REPORT INFORMATION
  Report Type: Spontaneous
  Country: US (occurrence: None)
  Receive Date: 20150211
  Receipt Date: 20150211
  Transmission Date: 20150721
  Serious: Yes (Hospitalization)
  Sender: FDA-Public Use
  Company Number: FR-ALSI-201500027

PATIENT
  Sex: Male

DRUGS (2)
  1. OXYGENE MEDICINAL LIQUIDE ALSF, GAZ PR INHALATION PR EVAPORATEUR FIX [Suspect]
     Active Substance: OXYGEN
     Indication: PRODUCT USED FOR UNKNOWN INDICATION
     Route: 058
  2. OXYGEN. [Suspect]
     Active Substance: OXYGEN

REACTIONS (4)
  - Burns second degree [None]
  - Frostbite [None]
  - Incorrect route of drug administration [None]
  - Device leakage [None]

NARRATIVE: CASE EVENT DATE: 20150107
